FAERS Safety Report 15658731 (Version 1)
Quarter: 2018Q4

REPORT INFORMATION
  Report Type: Spontaneous
  Country: US (occurrence: US)
  Receive Date: 20181126
  Receipt Date: 20181126
  Transmission Date: 20190205
  Serious: No
  Sender: FDA-Public Use
  Company Number: US-ASTRAZENECA-2018SF53721

PATIENT
  Age: 42 Year
  Sex: Female
  Weight: 97.5 kg

DRUGS (26)
  1. MESTINON [Concomitant]
     Active Substance: PYRIDOSTIGMINE BROMIDE
     Indication: MYASTHENIA GRAVIS
     Route: 048
  2. ZETIA [Concomitant]
     Active Substance: EZETIMIBE
     Indication: BLOOD CHOLESTEROL
     Route: 048
     Dates: start: 2015
  3. SINGULAIR [Concomitant]
     Active Substance: MONTELUKAST SODIUM
     Indication: MULTIPLE ALLERGIES
     Route: 048
     Dates: start: 2012
  4. TORSEMIDE. [Concomitant]
     Active Substance: TORSEMIDE
     Indication: FLUID RETENTION
     Route: 048
     Dates: start: 2005
  5. BENTYL [Concomitant]
     Active Substance: DICYCLOMINE HYDROCHLORIDE
     Indication: ABDOMINAL DISCOMFORT
     Route: 048
     Dates: start: 2005
  6. XELJANZ XR [Concomitant]
     Active Substance: TOFACITINIB CITRATE
     Indication: RHEUMATOID ARTHRITIS
     Route: 048
     Dates: start: 2017
  7. BUMETANIDE. [Concomitant]
     Active Substance: BUMETANIDE
     Indication: FLUID RETENTION
     Route: 048
     Dates: start: 2005
  8. ESTRADIOL. [Concomitant]
     Active Substance: ESTRADIOL
     Indication: HYSTERECTOMY
     Route: 048
     Dates: start: 2012
  9. PEPCID [Concomitant]
     Active Substance: FAMOTIDINE
     Indication: ANTACID THERAPY
     Route: 048
     Dates: start: 2005
  10. BEPREVE [Concomitant]
     Active Substance: BEPOTASTINE BESILATE
     Indication: HYPERSENSITIVITY
     Dosage: 1.5MG AS REQUIRED
     Route: 001
     Dates: start: 2012
  11. BICTOZA [Concomitant]
     Indication: BLOOD INSULIN
     Dosage: 1.6USP UNITS AT NIGHT
     Route: 058
     Dates: start: 2017
  12. MULTI VITAMIN [Concomitant]
     Active Substance: VITAMINS
     Route: 048
  13. NASACORT [Concomitant]
     Active Substance: TRIAMCINOLONE ACETONIDE
     Indication: MULTIPLE ALLERGIES
     Route: 045
     Dates: start: 2012
  14. ADVAIR DISKUS [Concomitant]
     Active Substance: FLUTICASONE PROPIONATE\SALMETEROL XINAFOATE
     Indication: MULTIPLE ALLERGIES
     Route: 055
     Dates: start: 2012
  15. XANAX [Concomitant]
     Active Substance: ALPRAZOLAM
     Indication: PROPHYLAXIS
     Route: 048
     Dates: start: 2005
  16. KLOR/CON [Concomitant]
     Indication: BLOOD POTASSIUM
     Route: 048
     Dates: start: 2010
  17. NEXIUM [Suspect]
     Active Substance: ESOMEPRAZOLE MAGNESIUM
     Indication: GASTROOESOPHAGEAL REFLUX DISEASE
     Route: 048
     Dates: start: 2017
  18. PROBIOTIC [Concomitant]
     Active Substance: PROBIOTICS NOS
     Indication: PROPHYLAXIS
     Route: 048
     Dates: start: 2005
  19. ZOMIG [Suspect]
     Active Substance: ZOLMITRIPTAN
     Indication: MIGRAINE
     Dosage: 5.0MG AS REQUIRED
     Route: 048
     Dates: start: 1998
  20. NEXIUM [Suspect]
     Active Substance: ESOMEPRAZOLE MAGNESIUM
     Indication: GASTROOESOPHAGEAL REFLUX DISEASE
     Route: 048
     Dates: end: 2017
  21. TIZANIDINE. [Concomitant]
     Active Substance: TIZANIDINE
     Indication: MUSCLE RELAXANT THERAPY
     Route: 048
     Dates: start: 2013
  22. SYNTHROID [Concomitant]
     Active Substance: LEVOTHYROXINE SODIUM
     Indication: THYROID DISORDER
     Route: 048
  23. XYZAL [Concomitant]
     Active Substance: LEVOCETIRIZINE DIHYDROCHLORIDE
     Indication: MULTIPLE ALLERGIES
     Route: 048
     Dates: start: 2012
  24. PROAIR HFA [Concomitant]
     Active Substance: ALBUTEROL SULFATE
     Indication: MULTIPLE ALLERGIES
     Dosage: 90.0MG AS REQUIRED
     Route: 055
     Dates: start: 2012
  25. VITAMIN D [Concomitant]
     Active Substance: CHOLECALCIFEROL
     Indication: RHEUMATOID ARTHRITIS
     Route: 048
     Dates: start: 2005
  26. NARCO [Concomitant]
     Indication: PAIN
     Dosage: EVERY 4 - 6 HOURS
     Route: 050
     Dates: start: 2013

REACTIONS (6)
  - Gastrooesophageal reflux disease [Unknown]
  - Diabetes mellitus [Unknown]
  - Circumstance or information capable of leading to medication error [Unknown]
  - Product colour issue [Unknown]
  - Migraine [Unknown]
  - Gastrointestinal disorder [Unknown]

NARRATIVE: CASE EVENT DATE: 1998
